FAERS Safety Report 8435925-3 (Version None)
Quarter: 2012Q2

REPORT INFORMATION
  Report Type: 
  Country: None (occurrence: None)
  Receive Date: 20120608
  Receipt Date: 20120608
  Transmission Date: 20120825
  Serious: Yes (Death)
  Sender: FDA-Public Use
  Company Number: None

PATIENT
  Age: 29 Year
  Sex: Female
  Weight: 88.7 kg

DRUGS (12)
  1. BENLYSTA [Suspect]
     Indication: SYSTEMIC LUPUS ERYTHEMATOSUS
     Dates: start: 20120101, end: 20120420
  2. BENLYSTA [Suspect]
     Indication: DRUG RESISTANCE
     Dates: start: 20120101, end: 20120420
  3. PREGABALIN [Concomitant]
  4. ALBUTEROL CALCIUM CARBONATE [Concomitant]
  5. HYDROXYCHLOROQUINE SULFATE [Concomitant]
  6. TRAMADOL HCL [Concomitant]
  7. PREDNISOPNE [Concomitant]
  8. ACETAMINOPHEN [Concomitant]
  9. DOCUSATE [Concomitant]
  10. OXYCODONE HCL [Concomitant]
  11. SUMATRIPTAN [Concomitant]
  12. FLUTICASONE FUROATE [Concomitant]

REACTIONS (14)
  - MULTI-ORGAN FAILURE [None]
  - PERIPHERAL ISCHAEMIA [None]
  - TRICUSPID VALVE INCOMPETENCE [None]
  - CARDIOMYOPATHY [None]
  - RHABDOMYOLYSIS [None]
  - PULMONARY HYPERTENSION [None]
  - CONTINUOUS HAEMODIAFILTRATION [None]
  - COMPARTMENT SYNDROME [None]
  - CARDIAC FAILURE CONGESTIVE [None]
  - MITRAL VALVE INCOMPETENCE [None]
  - LUPUS MYOCARDITIS [None]
  - CARDIOTOXICITY [None]
  - CARDIOGENIC SHOCK [None]
  - RENAL FAILURE ACUTE [None]
